FAERS Safety Report 7479512-2 (Version None)
Quarter: 2011Q2

REPORT INFORMATION
  Report Type: 
  Country: None (occurrence: None)
  Receive Date: 20110513
  Receipt Date: 20110510
  Transmission Date: 20111010
  Serious: Yes (Other)
  Sender: FDA-Public Use
  Company Number: US-PFIZER INC-2011100518

PATIENT
  Sex: Female

DRUGS (1)
  1. PREPARATION H HEMORRHOIDAL SUPPOSITORIES [Suspect]
     Indication: HAEMORRHOIDS
     Dosage: UNK
     Route: 054

REACTIONS (4)
  - PALPITATIONS [None]
  - OROPHARYNGEAL PAIN [None]
  - MALAISE [None]
  - CARDIAC FLUTTER [None]
